FAERS Safety Report 25433450 (Version 2)
Quarter: 2025Q4

REPORT INFORMATION
  Report Type: Spontaneous
  Country: EU (occurrence: EU)
  Receive Date: 20250613
  Receipt Date: 20251228
  Transmission Date: 20260117
  Serious: Yes (Life-Threatening, Hospitalization)
  Sender: ACCORD
  Company Number: EU-Accord-490122

PATIENT
  Age: 14 Year
  Sex: Female

DRUGS (13)
  1. MYCOPHENOLATE MOFETIL [Suspect]
     Active Substance: MYCOPHENOLATE MOFETIL
     Indication: Acute graft versus host disease in skin
  2. CYCLOSPORINE [Suspect]
     Active Substance: CYCLOSPORINE
     Indication: Acute graft versus host disease in skin
     Dosage: DOSE INCREASED
  3. METHYLPREDNISOLONE [Suspect]
     Active Substance: METHYLPREDNISOLONE
     Indication: Graft versus host disease in gastrointestinal tract
     Dosage: PULSE THERAPY (A TOTAL OF THREE PULSES OF 2000 G)
  4. CASPOFUNGIN [Concomitant]
     Active Substance: CASPOFUNGIN
     Indication: Antifungal treatment
  5. ETHOSUXIMIDE [Concomitant]
     Active Substance: ETHOSUXIMIDE
     Indication: Petit mal epilepsy
     Dosage: DECREASED
  6. LAMOTRIGINE [Concomitant]
     Active Substance: LAMOTRIGINE
     Indication: Petit mal epilepsy
     Dosage: INCREASED
  7. LEVETIRACETAM [Concomitant]
     Active Substance: LEVETIRACETAM
     Indication: Seizure
  8. MEROPENEM [Concomitant]
     Active Substance: MEROPENEM
     Indication: Systemic bacterial infection
  9. METHOTREXATE [Concomitant]
     Active Substance: METHOTREXATE
     Indication: Prophylaxis against graft versus host disease
  10. SUMATRIPTAN [Concomitant]
     Active Substance: SUMATRIPTAN
     Indication: Migraine
     Dosage: INTERMITTENT TREATMENT
  11. MEROPENEM [Concomitant]
     Active Substance: MEROPENEM
     Indication: Febrile neutropenia
  12. CYCLOSPORINE [Suspect]
     Active Substance: CYCLOSPORINE
     Indication: Prophylaxis against graft versus host disease
     Dosage: DOSE INCREASED
  13. METHYLPREDNISOLONE [Suspect]
     Active Substance: METHYLPREDNISOLONE
     Indication: Graft versus host disease in gastrointestinal tract

REACTIONS (12)
  - Hypertension [Unknown]
  - Cytomegalovirus infection reactivation [Unknown]
  - BK virus infection [Unknown]
  - Renal impairment [Unknown]
  - Pericardial effusion [Unknown]
  - Respiratory failure [Unknown]
  - Cytomegalovirus viraemia [Unknown]
  - Polyserositis [Unknown]
  - Multiple organ dysfunction syndrome [Unknown]
  - Infection reactivation [Unknown]
  - Thrombotic microangiopathy [Unknown]
  - Off label use [Unknown]
